FAERS Safety Report 23659258 (Version 1)
Quarter: 2024Q1

REPORT INFORMATION
  Report Type: Spontaneous
  Country: US (occurrence: US)
  Receive Date: 20240321
  Receipt Date: 20240321
  Transmission Date: 20240410
  Serious: No
  Sender: FDA-Public Use
  Company Number: US-MYOVANT SCIENCES GMBH-2024MYSCI0200854

PATIENT
  Age: 27 Year
  Sex: Female

DRUGS (2)
  1. MYFEMBREE [Suspect]
     Active Substance: ESTRADIOL HEMIHYDRATE\NORETHINDRONE ACETATE\RELUGOLIX
     Indication: Dyspareunia
     Dosage: 1 TAB, QD
     Route: 048
  2. MYFEMBREE [Suspect]
     Active Substance: ESTRADIOL HEMIHYDRATE\NORETHINDRONE ACETATE\RELUGOLIX
     Dosage: 1 TAB, QD
     Route: 048

REACTIONS (7)
  - Disturbance in attention [Unknown]
  - Pain [Unknown]
  - Heavy menstrual bleeding [Unknown]
  - Hot flush [Unknown]
  - Hyperhidrosis [Unknown]
  - Off label use [Not Recovered/Not Resolved]
  - Therapy interrupted [Recovered/Resolved]

NARRATIVE: CASE EVENT DATE: 20240101
